FAERS Safety Report 9263177 (Version 1)
Quarter: 2013Q2

REPORT INFORMATION
  Report Type: Spontaneous
  Country: GB (occurrence: None)
  Receive Date: 20130425
  Receipt Date: 20130425
  Transmission Date: 20140414
  Serious: Yes (Other)
  Sender: FDA-Public Use
  Company Number: KAD201304-000473

PATIENT
  Age: 61 Year
  Sex: Male

DRUGS (3)
  1. RIBAVIRIN [Suspect]
     Indication: HEPATITIS C
     Dosage: 600 MG TWICE DAILY; TABLET, ORAL
     Route: 048
     Dates: start: 20130109, end: 20130221
  2. TELAPREVIR [Suspect]
     Indication: HEPATITIS C
     Dosage: 750 MG THRICE DAILY; TABLET, ORAL
     Route: 048
     Dates: start: 20130214
  3. PEGYLATED INTERFERON [Suspect]
     Indication: HEPATITIS C
     Dosage: 180 MCG ONCE WEEKLY; INJECTION, SUBCUTANEOUS
     Route: 058
     Dates: start: 20130109

REACTIONS (4)
  - Anaemia [None]
  - Hypotension [None]
  - Dizziness [None]
  - Dyspnoea [None]
